FAERS Safety Report 10053736 (Version 1)
Quarter: 2014Q2

REPORT INFORMATION
  Report Type: Report from Study
  Country: BR (occurrence: BR)
  Receive Date: 20140402
  Receipt Date: 20140402
  Transmission Date: 20141212
  Serious: Yes (Other)
  Sender: FDA-Public Use
  Company Number: PHHY2014BR038947

PATIENT
  Sex: Female
  Weight: 65 kg

DRUGS (5)
  1. FORASEQ [Suspect]
     Indication: ASTHMA
     Dosage: 1 DF, DAILY
     Route: 055
  2. FORASEQ [Suspect]
     Indication: ALLERGIC BRONCHITIS
  3. LOSARTAN [Concomitant]
     Indication: HYPERTENSION
     Dosage: 50 MG
  4. GLAUB [Concomitant]
     Indication: GLAUCOMA
     Dosage: 2 MG
  5. AMED [Concomitant]
     Indication: HYPERTENSION
     Dosage: 5 MG

REACTIONS (3)
  - Osteoporosis [Recovering/Resolving]
  - Glaucoma [Recovering/Resolving]
  - Hypertension [Recovering/Resolving]
